FAERS Safety Report 23950932 (Version 1)
Quarter: 2024Q2

REPORT INFORMATION
  Report Type: Report from Study
  Country: US (occurrence: US)
  Receive Date: 20240607
  Receipt Date: 20240607
  Transmission Date: 20240716
  Serious: No
  Sender: FDA-Public Use
  Company Number: US-SPRINGWORKS THERAPEUTICS-SW-001576

PATIENT
  Sex: Female

DRUGS (1)
  1. NIROGACESTAT [Suspect]
     Active Substance: NIROGACESTAT
     Indication: Desmoid tumour
     Dosage: 50 MILLIGRAM, QD
     Route: 048
     Dates: start: 20240417

REACTIONS (3)
  - Migraine [Unknown]
  - Headache [Unknown]
  - Intentional underdose [Unknown]
